FAERS Safety Report 25677835 (Version 1)
Quarter: 2025Q3

REPORT INFORMATION
  Report Type: Spontaneous
  Country: VE (occurrence: VE)
  Receive Date: 20250813
  Receipt Date: 20250813
  Transmission Date: 20251020
  Serious: Yes (Death, Other)
  Sender: NOVARTIS
  Company Number: VE-002147023-NVSC2025VE127492

PATIENT
  Sex: Female

DRUGS (1)
  1. GLIVEC [Suspect]
     Active Substance: IMATINIB MESYLATE
     Indication: Chronic myeloid leukaemia
     Route: 065

REACTIONS (4)
  - Respiratory arrest [Fatal]
  - Pulmonary oedema [Unknown]
  - Viral infection [Unknown]
  - Eye swelling [Unknown]
